FAERS Safety Report 4725966-1 (Version None)
Quarter: 2005Q3

REPORT INFORMATION
  Report Type: 
  Country: None (occurrence: None)
  Receive Date: 20050727
  Receipt Date: 20050516
  Transmission Date: 20060218
  Serious: Yes (Death, Hospitalization)
  Sender: FDA-Public Use
  Company Number: HCM-0073

PATIENT
  Age: 76 Year
  Sex: Male

DRUGS (11)
  1. HYCAMTIN [Suspect]
     Indication: SMALL CELL LUNG CANCER STAGE UNSPECIFIED
     Dosage: 1.5MG PER DAY
     Route: 042
     Dates: start: 20031215, end: 20031219
  2. CISPLATIN [Concomitant]
  3. IRINOTECAN HYDROCHLORIDE [Concomitant]
  4. COWPOX VIRUS VACCINE [Concomitant]
     Dosage: 8IU PER DAY
     Route: 048
     Dates: start: 20031219, end: 20040116
  5. MECOBALAMIN [Concomitant]
     Dosage: .75MG PER DAY
     Route: 048
     Dates: start: 20031219, end: 20040116
  6. NIFEDIPINE [Concomitant]
     Dosage: 20MG PER DAY
     Route: 048
     Dates: start: 20031219, end: 20040116
  7. MAGNESIUM OXIDE [Concomitant]
     Dosage: 1980MG PER DAY
     Route: 048
     Dates: start: 20031219, end: 20040116
  8. TRIAZOLAM [Concomitant]
     Dosage: .25MG PER DAY
     Route: 048
     Dates: start: 20031219, end: 20040116
  9. SENNOSIDE [Concomitant]
     Dosage: 2TAB PER DAY
     Route: 048
     Dates: start: 20031219, end: 20040116
  10. AMINOFLUID [Concomitant]
     Dosage: 500ML PER DAY
     Route: 042
     Dates: start: 20031219, end: 20040116
  11. METOCLOPRAMIDE [Concomitant]
     Dosage: 1AMP PER DAY
     Route: 042
     Dates: start: 20031219, end: 20040116

REACTIONS (5)
  - ANAEMIA [None]
  - BLOOD LACTATE DEHYDROGENASE INCREASED [None]
  - DIFFERENTIAL WHITE BLOOD CELL COUNT ABNORMAL [None]
  - SMALL CELL LUNG CANCER STAGE UNSPECIFIED [None]
  - WHITE BLOOD CELL COUNT DECREASED [None]
